FAERS Safety Report 22090039 (Version 2)
Quarter: 2023Q1

REPORT INFORMATION
  Report Type: Spontaneous
  Country: JP (occurrence: None)
  Receive Date: 20230313
  Receipt Date: 20230331
  Transmission Date: 20230418
  Serious: Yes (Death, Life-Threatening, Hospitalization)
  Sender: FDA-Public Use
  Company Number: 2023A040317

PATIENT
  Age: 81 Year
  Sex: Female
  Weight: 41 kg

DRUGS (31)
  1. TAGRISSO [Suspect]
     Active Substance: OSIMERTINIB
     Indication: Non-small cell lung cancer
     Route: 048
     Dates: start: 20221220, end: 20221226
  2. TAGRISSO [Suspect]
     Active Substance: OSIMERTINIB
     Indication: Non-small cell lung cancer
     Route: 048
     Dates: start: 20221227, end: 20230104
  3. CANRENOATE POTASSIUM [Concomitant]
     Active Substance: CANRENOATE POTASSIUM
     Dosage: 100.0MG UNKNOWN
     Route: 041
  4. DIAMOX SEQUELS [Concomitant]
     Active Substance: ACETAZOLAMIDE
     Dosage: DOSE UNKNOWN
     Route: 042
  5. DEXMEDETOMIDINE [Concomitant]
     Active Substance: DEXMEDETOMIDINE
     Dosage: DOSE UNKNOWN
     Route: 041
  6. PROPOFOL [Concomitant]
     Active Substance: PROPOFOL
     Dosage: DOSE UNKNOWN
     Route: 041
  7. FENTANYL [Concomitant]
     Active Substance: FENTANYL
     Dosage: DOSE UNKNOWN
     Route: 041
  8. LASIX [Concomitant]
     Active Substance: FUROSEMIDE
     Dosage: DOSE UNKNOWN
     Route: 041
  9. NOREPINEPHRINE [Concomitant]
     Active Substance: NOREPINEPHRINE
     Dosage: DOSE UNKNOWN
     Route: 041
  10. SAMTASU [Concomitant]
     Dosage: DOSE UNKNOWN
     Route: 041
  11. DORMICUM [Concomitant]
     Dosage: DOSE UNKNOWN
     Route: 041
  12. FESIN [Concomitant]
     Dosage: DOSE UNKNOWN
     Route: 042
  13. DIGILANOGEN C [Concomitant]
     Dosage: DOSE UNKNOWN
     Route: 042
  14. VASOLAN [Concomitant]
     Dosage: DOSE UNKNOWN
     Route: 041
  15. SOLDEM 3A [Concomitant]
     Active Substance: CARBOHYDRATES\POTASSIUM CHLORIDE\SODIUM CHLORIDE\SODIUM LACTATE
     Dosage: DOSE UNKNOWN
     Route: 041
  16. DEXTROSE [Concomitant]
     Active Substance: DEXTROSE
     Dosage: DOSE UNKNOWN
  17. NEOLAMIN 3B [Concomitant]
     Dosage: DOSE UNKNOWN
     Route: 041
  18. SODIUM CHLORIDE [Concomitant]
     Active Substance: SODIUM CHLORIDE
     Dosage: DOSE UNKNOWN
     Route: 041
  19. EPINEPHRINE [Concomitant]
     Active Substance: EPINEPHRINE
     Dosage: DOSE UNKNOWN
     Route: 030
  20. OMEPRAZOLE [Concomitant]
     Active Substance: OMEPRAZOLE
     Dosage: DOSE UNKNOWN
     Route: 042
  21. ROCURONIUM BROMIDE [Concomitant]
     Active Substance: ROCURONIUM BROMIDE
     Dosage: DOSE UNKNOWN
     Route: 041
  22. NITROGLYCERIN [Concomitant]
     Active Substance: NITROGLYCERIN
     Dosage: DOSE UNKNOWN
     Route: 041
  23. ADONA [Concomitant]
     Dosage: DOSE UNKNOWN
     Route: 041
  24. TRANSAMIN [Concomitant]
     Active Substance: TRANEXAMIC ACID
     Dosage: DOSE UNKNOWN
     Route: 041
  25. HEPARIN CALCIUM [Concomitant]
     Active Substance: HEPARIN CALCIUM
     Dosage: DOSE UNKNOWN
     Route: 058
  26. HEPARIN SODIUM [Concomitant]
     Active Substance: HEPARIN SODIUM
     Dosage: DOSE UNKNOWN
     Route: 042
  27. PRIMPERAN [Concomitant]
     Active Substance: METOCLOPRAMIDE HYDROCHLORIDE
     Dosage: DOSE UNKNOWN
     Route: 042
  28. CARPERITIDE [Concomitant]
     Active Substance: CARPERITIDE
     Dosage: DOSE UNKNOWN
     Route: 041
  29. ALBUMIN HUMAN [Concomitant]
     Active Substance: ALBUMIN HUMAN
     Indication: Pulmonary congestion
     Dosage: DOSE UNKNOWN
     Dates: start: 20221107
  30. AMPICILLIN SODIUM\SULBACTAM SODIUM [Concomitant]
     Active Substance: AMPICILLIN SODIUM\SULBACTAM SODIUM
     Indication: Pulmonary congestion
     Dosage: DOSE UNKNOWN
     Dates: start: 20221107
  31. TORSEMIDE [Concomitant]
     Active Substance: TORSEMIDE
     Indication: Cardiac failure congestive
     Dates: start: 20221110, end: 20230107

REACTIONS (6)
  - Acute respiratory distress syndrome [Fatal]
  - Cardiac failure congestive [Fatal]
  - Platelet count decreased [Recovering/Resolving]
  - Atrial fibrillation [Recovering/Resolving]
  - Pneumonia bacterial [Unknown]
  - Tachycardia [Unknown]

NARRATIVE: CASE EVENT DATE: 20221226
